FAERS Safety Report 9375314 (Version 1)
Quarter: 2013Q2

REPORT INFORMATION
  Report Type: Report from Study
  Country: JP (occurrence: JP)
  Receive Date: 20130628
  Receipt Date: 20130628
  Transmission Date: 20140414
  Serious: Yes (Life-Threatening)
  Sender: FDA-Public Use
  Company Number: JP-EISAI-201302253

PATIENT
  Age: 86 Year
  Sex: Male
  Weight: 54 kg

DRUGS (4)
  1. LUNESTA [Suspect]
     Indication: INSOMNIA
     Route: 048
     Dates: start: 20130305
  2. BAYASPIRIN [Concomitant]
     Indication: ANGINA PECTORIS
     Route: 048
  3. NIKORANMART [Concomitant]
     Indication: ANGINA PECTORIS
     Route: 048
  4. BAYMYCARD [Concomitant]
     Indication: HYPERTENSION
     Route: 048

REACTIONS (1)
  - Gastric perforation [Recovered/Resolved]
